FAERS Safety Report 6540113-1 (Version None)
Quarter: 2010Q1

REPORT INFORMATION
  Report Type: 
  Country: None (occurrence: None)
  Receive Date: 20100115
  Receipt Date: 20100111
  Transmission Date: 20100710
  Serious: Yes (Death)
  Sender: FDA-Public Use
  Company Number: BO-PFIZER INC-2010004224

PATIENT
  Age: 68 Year
  Sex: Male

DRUGS (4)
  1. CELECOXIB [Suspect]
     Indication: CANCER PAIN
     Dosage: 200 MG, 2X/DAY
     Route: 048
     Dates: start: 20081105
  2. LYRICA [Suspect]
     Indication: CANCER PAIN
     Dosage: 75 MG, 1X/DAY
     Route: 048
     Dates: start: 20090506
  3. PARACETAMOL [Concomitant]
     Indication: CANCER PAIN
  4. MORPHINE [Concomitant]
     Indication: CANCER PAIN
     Dosage: 25 MG, 1X/DAY

REACTIONS (1)
  - METASTATIC NEOPLASM [None]
